FAERS Safety Report 4330764-7 (Version None)
Quarter: 2004Q1

REPORT INFORMATION
  Report Type: 
  Country: None (occurrence: None)
  Receive Date: 20040329
  Receipt Date: 20040315
  Transmission Date: 20041129
  Serious: Yes (Death)
  Sender: FDA-Public Use
  Company Number: US-JNJFOC-20031202039

PATIENT
  Age: 75 Year
  Sex: Male

DRUGS (1)
  1. DURAGESIC [Suspect]
     Dosage: 25 UG/HR, 1 IN 72 HOUR, TRANSDERMAL
     Route: 062
     Dates: end: 20030801

REACTIONS (2)
  - INFECTION [None]
  - MEDICATION ERROR [None]
